FAERS Safety Report 20447590 (Version 3)
Quarter: 2025Q1

REPORT INFORMATION
  Report Type: Report from Study
  Country: US (occurrence: US)
  Receive Date: 20220209
  Receipt Date: 20250115
  Transmission Date: 20250409
  Serious: Yes (Hospitalization, Other)
  Sender: HRA PHARMA
  Company Number: US-HRARD-202000929

PATIENT
  Age: 38 Year
  Sex: Female

DRUGS (8)
  1. LYSODREN [Suspect]
     Active Substance: MITOTANE
     Indication: Neoplasm malignant
     Route: 048
     Dates: start: 20190619
  2. LYSODREN [Suspect]
     Active Substance: MITOTANE
     Indication: Neoplasm malignant
     Dosage: 07 TABLETS DAILY
     Route: 048
     Dates: end: 2020
  3. LYSODREN [Suspect]
     Active Substance: MITOTANE
     Indication: Neoplasm malignant
     Dosage: AS OF 02 NOV 2020: 1000 MG 4 TIMES A DAY, ONGOING
     Route: 048
     Dates: start: 20201102
  4. LYSODREN [Suspect]
     Active Substance: MITOTANE
     Indication: Neoplasm malignant
     Dosage: 2 TABLETS AT BEDTIME ON MONDAY THROUGH SATURDAY, AND 3 TABLETS AT BEDTIME ON SUNDAY
     Route: 048
     Dates: end: 2024
  5. LYSODREN [Suspect]
     Active Substance: MITOTANE
     Indication: Neoplasm malignant
     Dosage: 3 TABLETS BY MOUTH
     Route: 048
  6. CIPROFLOXACIN [Concomitant]
     Active Substance: CIPROFLOXACIN
     Indication: Product used for unknown indication
  7. PRADAXA CAP 150MG [Concomitant]
     Indication: Product used for unknown indication
  8. VARENICLINE TAB 0.5MG [Concomitant]
     Indication: Ex-tobacco user

REACTIONS (4)
  - Adrenocortical insufficiency acute [Unknown]
  - Fatigue [Not Recovered/Not Resolved]
  - Nausea [Unknown]
  - Memory impairment [Not Recovered/Not Resolved]

NARRATIVE: CASE EVENT DATE: 20210322
